FAERS Safety Report 19794262 (Version 2)
Quarter: 2021Q3

REPORT INFORMATION
  Report Type: Spontaneous
  Country: UY (occurrence: UY)
  Receive Date: 20210907
  Receipt Date: 20210919
  Transmission Date: 20211014
  Serious: Yes (Other)
  Sender: FDA-Public Use
  Company Number: UY-AMGEN-URYSP2021137777

PATIENT
  Age: 30 Year
  Sex: Female

DRUGS (4)
  1. LEVOFLOXACINA [Concomitant]
     Active Substance: LEVOFLOXACIN
     Dosage: UNK
  2. ENBREL [Suspect]
     Active Substance: ETANERCEPT
     Indication: RHEUMATOID ARTHRITIS
     Dosage: 50 MG, WEEKLY
     Route: 065
     Dates: start: 20160830, end: 202106
  3. RIFAMPICINA [Concomitant]
     Active Substance: RIFAMPIN
     Dosage: UNK
  4. PENICILLIN NOS [Concomitant]
     Active Substance: PENICILLIN
     Dosage: UNK

REACTIONS (6)
  - Device related infection [Not Recovered/Not Resolved]
  - Arthritis infective [Not Recovered/Not Resolved]
  - Condition aggravated [Not Recovered/Not Resolved]
  - Impaired healing [Not Recovered/Not Resolved]
  - Uveitis [Not Recovered/Not Resolved]
  - Eye disorder [Not Recovered/Not Resolved]

NARRATIVE: CASE EVENT DATE: 20210409
